FAERS Safety Report 5044310-6 (Version None)
Quarter: 2006Q2

REPORT INFORMATION
  Report Type: 
  Country: None (occurrence: None)
  Receive Date: 20060629
  Receipt Date: 20060619
  Transmission Date: 20061013
  Serious: Yes (Other)
  Sender: FDA-Public Use
  Company Number: L06 -USA-02571-01

PATIENT
  Age: 40 Year
  Sex: Female

DRUGS (2)
  1. CARBAMAZEPINE [Suspect]
     Indication: GRAND MAL CONVULSION
     Dosage: 1600 MG QD
  2. PHENOBARBITAL TAB [Suspect]
     Indication: GRAND MAL CONVULSION
     Dosage: 30 MG QD

REACTIONS (4)
  - COORDINATION ABNORMAL [None]
  - GINGIVAL HYPERTROPHY [None]
  - PETIT MAL EPILEPSY [None]
  - VISION BLURRED [None]
